FAERS Safety Report 4872010-1 (Version None)
Quarter: 2005Q4

REPORT INFORMATION
  Report Type: 
  Country: None (occurrence: None)
  Receive Date: 20051230
  Receipt Date: 20051220
  Transmission Date: 20060501
  Serious: No
  Sender: FDA-Public Use
  Company Number: 2005S1008685

PATIENT
  Age: 35 Year
  Sex: Female
  Weight: 78.9259 kg

DRUGS (18)
  1. CLOZAPINE [Suspect]
     Indication: SCHIZOPHRENIA
     Dosage: 50 MG; HS; PO
     Route: 048
     Dates: start: 20050822, end: 20050823
  2. CLOZAPINE [Suspect]
     Indication: SCHIZOPHRENIA
     Dosage: 50 MG; HS; PO
     Route: 048
     Dates: start: 20050826, end: 20050827
  3. CLOZAPINE [Suspect]
     Indication: SCHIZOPHRENIA
     Dosage: 50 MG; HS; PO
     Route: 048
     Dates: start: 20050830, end: 20050901
  4. CLOZAPINE [Suspect]
     Indication: SCHIZOPHRENIA
     Dosage: SEE IMAGE
     Route: 048
     Dates: start: 20050610, end: 20050821
  5. CLOZAPINE [Suspect]
     Indication: SCHIZOPHRENIA
     Dosage: SEE IMAGE
     Route: 048
     Dates: start: 20050822, end: 20050825
  6. CLOZAPINE [Suspect]
     Indication: SCHIZOPHRENIA
     Dosage: SEE IMAGE
     Route: 048
     Dates: start: 20050826, end: 20050829
  7. CLOZAPINE [Suspect]
     Indication: SCHIZOPHRENIA
     Dosage: SEE IMAGE
     Route: 048
     Dates: start: 20050830, end: 20050901
  8. ARIPIPRAZOLE [Concomitant]
  9. VALPROATE SODIUM [Concomitant]
  10. POLYCARBOPHIL CALCIUM [Concomitant]
  11. DOCUSATE SODIUM [Concomitant]
  12. DULOXETINE [Concomitant]
  13. ATORVASTATIN [Concomitant]
  14. HYDROCHLOROTHIAZIDE [Concomitant]
  15. LISINOPRIL [Concomitant]
  16. PROPRANOLOL [Concomitant]
  17. METFORMIN [Concomitant]
  18. VITAMINS [Concomitant]

REACTIONS (5)
  - CHEST PAIN [None]
  - DROOLING [None]
  - GRANULOCYTOPENIA [None]
  - SOMNOLENCE [None]
  - WEIGHT INCREASED [None]
